FAERS Safety Report 9034562 (Version 1)
Quarter: 2013Q1

REPORT INFORMATION
  Report Type: Spontaneous
  Country: US (occurrence: None)
  Receive Date: 20130115
  Receipt Date: 20130115
  Transmission Date: 20140127
  Serious: Yes (Hospitalization, Other)
  Sender: FDA-Public Use
  Company Number: 2013-00062

PATIENT
  Age: 24 Year
  Sex: Male

DRUGS (2)
  1. HALOPERIDOL LACTATE [Suspect]
     Indication: SCHIZOPHRENIA
     Route: 048
  2. ILOPERIDONE [Suspect]
     Indication: SCHIZOPHRENIA
     Dosage: 2 MG BID, AND 1 DOSE OF 4 MG IN THE MORNING

REACTIONS (2)
  - Angioedema [None]
  - Drug hypersensitivity [None]
